FAERS Safety Report 19039560 (Version 1)
Quarter: 2021Q1

REPORT INFORMATION
  Report Type: Spontaneous
  Country: US (occurrence: US)
  Receive Date: 20210322
  Receipt Date: 20210322
  Transmission Date: 20210420
  Serious: No
  Sender: FDA-Public Use
  Company Number: US-VERTEX PHARMACEUTICALS-2020-003650

PATIENT
  Sex: Female
  Weight: 63 kg

DRUGS (2)
  1. TRIKAFTA [Suspect]
     Active Substance: ELEXACAFTOR\IVACAFTOR\TEZACAFTOR
     Dosage: (100 MG ELEXACAFTOR/50 MG TEZACAFTOR/75 MG IVACAFTOR; 150 MG IVACAFTOR), BID
     Route: 048
     Dates: start: 20200413
  2. TRIKAFTA [Suspect]
     Active Substance: ELEXACAFTOR\IVACAFTOR\TEZACAFTOR
     Indication: CYSTIC FIBROSIS
     Dosage: (100 MG ELEXACAFTOR/50 MG TEZACAFTOR/75 MG IVACAFTOR; 150 MG IVACAFTOR), BID
     Route: 048
     Dates: start: 2020, end: 2020

REACTIONS (2)
  - Gestational diabetes [Unknown]
  - Exposure during pregnancy [Unknown]

NARRATIVE: CASE EVENT DATE: 2020
